FAERS Safety Report 18443380 (Version 1)
Quarter: 2020Q4

REPORT INFORMATION
  Report Type: Spontaneous
  Country: IN (occurrence: IT)
  Receive Date: 20201029
  Receipt Date: 20201029
  Transmission Date: 20210114
  Serious: Yes (Death, Life-Threatening, Hospitalization, Other)
  Sender: FDA-Public Use
  Company Number: IT-ELI_LILLY_AND_COMPANY-IT202010010934

PATIENT
  Age: 55 Year
  Sex: Female

DRUGS (9)
  1. PAZOPANIB [Suspect]
     Active Substance: PAZOPANIB
     Indication: SPINDLE CELL SARCOMA
  2. ZOLEDRONIC ACID [Concomitant]
     Active Substance: ZOLEDRONIC ACID
     Indication: CONNECTIVE TISSUE NEOPLASM
     Dates: start: 201903
  3. ZOLEDRONIC ACID [Concomitant]
     Active Substance: ZOLEDRONIC ACID
     Indication: INFLAMMATORY MYOFIBROBLASTIC TUMOUR
  4. PAZOPANIB [Suspect]
     Active Substance: PAZOPANIB
     Indication: INFLAMMATORY MYOFIBROBLASTIC TUMOUR
  5. GEMCITABINE HYDROCHLORIDE. [Suspect]
     Active Substance: GEMCITABINE HYDROCHLORIDE
     Indication: SPINDLE CELL SARCOMA
  6. PAZOPANIB [Suspect]
     Active Substance: PAZOPANIB
     Indication: CONNECTIVE TISSUE NEOPLASM
     Dosage: 800 MG, DAILY
     Route: 065
     Dates: start: 201910
  7. GEMCITABINE HYDROCHLORIDE. [Suspect]
     Active Substance: GEMCITABINE HYDROCHLORIDE
     Indication: CONNECTIVE TISSUE NEOPLASM
     Dosage: UNK UNK, UNKNOWN
     Route: 065
     Dates: start: 201903, end: 201909
  8. GEMCITABINE HYDROCHLORIDE. [Suspect]
     Active Substance: GEMCITABINE HYDROCHLORIDE
     Indication: INFLAMMATORY MYOFIBROBLASTIC TUMOUR
     Dosage: UNK, UNKNOWN
     Route: 065
     Dates: start: 201910
  9. ZOLEDRONIC ACID [Concomitant]
     Active Substance: ZOLEDRONIC ACID
     Indication: SPINDLE CELL SARCOMA

REACTIONS (4)
  - Cardiac failure acute [Fatal]
  - Cardio-respiratory arrest [Fatal]
  - Cardiotoxicity [Fatal]
  - Left ventricular dysfunction [Not Recovered/Not Resolved]

NARRATIVE: CASE EVENT DATE: 2019
